FAERS Safety Report 26012078 (Version 1)
Quarter: 2025Q4

REPORT INFORMATION
  Report Type: Spontaneous
  Country: EU (occurrence: EU)
  Receive Date: 20251107
  Receipt Date: 20251107
  Transmission Date: 20260118
  Serious: Yes (Other)
  Sender: TEVA
  Company Number: None

PATIENT
  Age: 44 Year
  Sex: Male

DRUGS (4)
  1. BUPRENORPHINE [Suspect]
     Active Substance: BUPRENORPHINE
     Indication: Product used for unknown indication
     Dosage: }-16 MG/DAY
     Route: 060
     Dates: start: 202505
  2. ALCOHOL [Suspect]
     Active Substance: ALCOHOL
     Indication: Product used for unknown indication
     Dosage: BETWEEN 1.5 AND 2 L/DAY; ALCOHOL (DRINK)
     Route: 048
     Dates: start: 1993
  3. COCAINE [Suspect]
     Active Substance: COCAINE
     Indication: Product used for unknown indication
     Dosage: 2 G AT THE BEGINNING OF THE MONTH
     Route: 042
     Dates: start: 2000
  4. HEROIN [Suspect]
     Active Substance: DIAMORPHINE
     Indication: Product used for unknown indication
     Dosage: 1 G/DAY FOR 4 DAYS AT THE BEGINNING OF THE MONTH
     Route: 042
     Dates: start: 1995

REACTIONS (2)
  - Substance use disorder [Not Recovered/Not Resolved]
  - Drug use disorder [Not Recovered/Not Resolved]
